FAERS Safety Report 9817829 (Version 2)
Quarter: 2014Q4

REPORT INFORMATION
  Report Type: Spontaneous
  Country: US (occurrence: US)
  Receive Date: 20140115
  Receipt Date: 20141219
  Transmission Date: 20150529
  Serious: Yes (Other)
  Sender: FDA-Public Use
  Company Number: US-SA-2014SA004877

PATIENT
  Age: 72 Year
  Sex: Male
  Weight: 95.25 kg

DRUGS (12)
  1. LANTUS SOLOSTAR [Suspect]
     Active Substance: INSULIN GLARGINE
     Indication: TYPE 2 DIABETES MELLITUS
     Dosage: 200/100 UNITS TWICE A DAY DAILY DOSE
     Route: 058
     Dates: start: 2007
  2. SOLOSTAR [Concomitant]
     Active Substance: DEVICE
  3. SOLOSTAR [Concomitant]
     Active Substance: DEVICE
  4. LANTUS SOLOSTAR [Suspect]
     Active Substance: INSULIN GLARGINE
     Indication: TYPE 2 DIABETES MELLITUS
     Dosage: 200/100 UNITS TWICE A DAY DAILY DOSE
     Route: 058
     Dates: start: 2007
  5. SOLOSTAR [Concomitant]
     Active Substance: DEVICE
  6. LANTUS SOLOSTAR [Suspect]
     Active Substance: INSULIN GLARGINE
     Indication: TYPE 2 DIABETES MELLITUS
     Dosage: 200/100 UNITS TWICE A DAY DAILY DOSE
     Route: 058
     Dates: start: 2007
  7. LANTUS SOLOSTAR [Suspect]
     Active Substance: INSULIN GLARGINE
     Indication: TYPE 2 DIABETES MELLITUS
     Dosage: 200/100 UNITS TWICE A DAY DAILY DOSE
     Route: 058
     Dates: start: 2007
  8. LANTUS SOLOSTAR [Suspect]
     Active Substance: INSULIN GLARGINE
     Indication: TYPE 2 DIABETES MELLITUS
     Dosage: 200/100 UNITS TWICE A DAY DAILY DOSE
     Route: 058
     Dates: start: 2007
  9. LANTUS SOLOSTAR [Suspect]
     Active Substance: INSULIN GLARGINE
     Indication: TYPE 2 DIABETES MELLITUS
     Dosage: 200/100 UNITS TWICE A DAY DAILY DOSE
     Route: 058
     Dates: start: 2007
  10. LANTUS SOLOSTAR [Suspect]
     Active Substance: INSULIN GLARGINE
     Indication: TYPE 2 DIABETES MELLITUS
     Dosage: 110-140 UNITS TWICE A DAY DAILY DOSE
     Route: 058
  11. LANTUS SOLOSTAR [Suspect]
     Active Substance: INSULIN GLARGINE
     Indication: TYPE 2 DIABETES MELLITUS
     Dosage: 200/100 UNITS TWICE A DAY DAILY DOSE
     Route: 058
     Dates: start: 2007
  12. LANTUS SOLOSTAR [Suspect]
     Active Substance: INSULIN GLARGINE
     Indication: TYPE 2 DIABETES MELLITUS
     Dosage: 80AND 30 UNITS TWICE A DAY DAILY DOSE
     Route: 058

REACTIONS (5)
  - Nasopharyngitis [Recovering/Resolving]
  - Drug administration error [Unknown]
  - Pneumonia [Recovering/Resolving]
  - Bronchitis [Recovering/Resolving]
  - Cataract operation [Unknown]

NARRATIVE: CASE EVENT DATE: 2012
